FAERS Safety Report 7264671-7 (Version None)
Quarter: 2011Q1

REPORT INFORMATION
  Report Type: 
  Country: None (occurrence: None)
  Receive Date: 20110131
  Receipt Date: 20110127
  Transmission Date: 20110831
  Serious: No
  Sender: FDA-Public Use
  Company Number: US-PFIZER INC-2011020004

PATIENT
  Sex: Female
  Weight: 77 kg

DRUGS (1)
  1. CHANTIX [Suspect]
     Indication: SMOKING CESSATION THERAPY
     Dosage: UNK
     Route: 048
     Dates: start: 20050101, end: 20050101

REACTIONS (3)
  - ABNORMAL DREAMS [None]
  - FATIGUE [None]
  - SLEEP DISORDER [None]
